FAERS Safety Report 23602165 (Version 1)
Quarter: 2024Q1

REPORT INFORMATION
  Report Type: Spontaneous
  Country: US (occurrence: US)
  Receive Date: 20240306
  Receipt Date: 20240306
  Transmission Date: 20240409
  Serious: No
  Sender: FDA-Public Use
  Company Number: US-SA-SAC20240228001370

PATIENT
  Sex: Female

DRUGS (1)
  1. DUPIXENT [Suspect]
     Active Substance: DUPILUMAB
     Indication: Dermatitis atopic
     Dosage: 300 MG, QOW
     Route: 058
     Dates: start: 20190507

REACTIONS (6)
  - Dry skin [Unknown]
  - Rash erythematous [Unknown]
  - Pruritus [Unknown]
  - Rash [Unknown]
  - Discomfort [Unknown]
  - Drug ineffective [Unknown]
